FAERS Safety Report 18930944 (Version 1)
Quarter: 2021Q1

REPORT INFORMATION
  Report Type: Spontaneous
  Country: US (occurrence: US)
  Receive Date: 20210223
  Receipt Date: 20210223
  Transmission Date: 20210420
  Serious: Yes (Other)
  Sender: FDA-Public Use
  Company Number: US-TOLMAR, INC.-21US025605

PATIENT
  Age: 72 Year
  Sex: Male

DRUGS (9)
  1. LUPRON [Concomitant]
     Active Substance: LEUPROLIDE ACETATE
     Dosage: UNK
     Route: 065
     Dates: start: 201507
  2. LISINOPRIL AND HYDROCHLOROTHIAZIDE [Concomitant]
     Active Substance: HYDROCHLOROTHIAZIDE\LISINOPRIL
     Indication: HYPERTENSION
     Dosage: 10 MG/12.5 MG, QD
     Route: 048
  3. ELIGARD [Suspect]
     Active Substance: LEUPROLIDE ACETATE
     Indication: PROSTATE CANCER
     Dosage: 22.5 MG, Q 3 MONTH
     Route: 065
     Dates: start: 202008
  4. ERLEADA [Concomitant]
     Active Substance: APALUTAMIDE
     Dosage: 60 MG, TID
     Route: 048
  5. SERTRALINE [Concomitant]
     Active Substance: SERTRALINE HYDROCHLORIDE
     Indication: EMOTIONAL DISORDER
     Dosage: 50 MG, QD
     Route: 048
     Dates: start: 2019
  6. ERLEADA [Concomitant]
     Active Substance: APALUTAMIDE
     Indication: PROSTATE CANCER
     Dosage: 60 MG, QD
     Route: 048
     Dates: start: 2019
  7. ERLEADA [Concomitant]
     Active Substance: APALUTAMIDE
     Dosage: 60 MG, BID
     Route: 048
     Dates: start: 2020
  8. ELIGARD [Suspect]
     Active Substance: LEUPROLIDE ACETATE
     Dosage: 22.5 MG, Q 3 MONTH
     Route: 065
     Dates: start: 202011, end: 202011
  9. LUPRON [Concomitant]
     Active Substance: LEUPROLIDE ACETATE
     Indication: PROSTATE CANCER
     Dosage: UNK, Q 1 MONTH
     Route: 065

REACTIONS (15)
  - Dysgeusia [Not Recovered/Not Resolved]
  - Blood testosterone increased [Unknown]
  - Decreased appetite [Not Recovered/Not Resolved]
  - Prostatic specific antigen increased [Unknown]
  - Disorientation [Recovered/Resolved]
  - Malaise [Not Recovered/Not Resolved]
  - Renal disorder [Unknown]
  - Testicular pain [Unknown]
  - Gastrointestinal disorder [Unknown]
  - Back pain [Unknown]
  - Inner ear disorder [Recovered/Resolved]
  - Abdominal tenderness [Unknown]
  - Drug ineffective [Unknown]
  - Neuropathy peripheral [Not Recovered/Not Resolved]
  - Abdominal pain upper [Unknown]

NARRATIVE: CASE EVENT DATE: 202008
